FAERS Safety Report 19414073 (Version 1)
Quarter: 2021Q2

REPORT INFORMATION
  Report Type: Other
  Country: US (occurrence: US)
  Receive Date: 20210615
  Receipt Date: 20210615
  Transmission Date: 20210717
  Serious: Yes (Other)
  Sender: FDA-Public Use
  Company Number: US-AJANTA PHARMA USA INC.-2112725

PATIENT
  Age: 68 Year
  Sex: Male

DRUGS (1)
  1. RANOLAZINE (ANDA 210054) [Suspect]
     Active Substance: RANOLAZINE
     Indication: ANGINA PECTORIS

REACTIONS (4)
  - Myopathy toxic [Recovered/Resolved]
  - Mental status changes [Recovered/Resolved]
  - Dropped head syndrome [Recovered/Resolved]
  - Respiratory failure [Recovered/Resolved]
